FAERS Safety Report 25151952 (Version 1)
Quarter: 2025Q2

REPORT INFORMATION
  Report Type: Spontaneous
  Country: US (occurrence: US)
  Receive Date: 20250402
  Receipt Date: 20250402
  Transmission Date: 20250717
  Serious: Yes (Death)
  Sender: UCB
  Company Number: US-UCBSA-2025018836

PATIENT
  Sex: Female
  Weight: 27.215 kg

DRUGS (1)
  1. CIMZIA [Suspect]
     Active Substance: CERTOLIZUMAB PEGOL
     Indication: Psoriasis
     Dosage: 400 MILLIGRAM, UNK
     Route: 058
     Dates: start: 202403

REACTIONS (1)
  - Death [Fatal]
